FAERS Safety Report 17568064 (Version 1)
Quarter: 2020Q1

REPORT INFORMATION
  Report Type: Spontaneous
  Country: US (occurrence: US)
  Receive Date: 20200321
  Receipt Date: 20200321
  Transmission Date: 20200409
  Serious: No
  Sender: FDA-Public Use
  Company Number: US-HETERO-HET2020US00345

PATIENT
  Age: 18 Year
  Sex: Female

DRUGS (1)
  1. OSELTAMIVIR [Suspect]
     Active Substance: OSELTAMIVIR
     Indication: ANTIVIRAL PROPHYLAXIS
     Dosage: 75 MG, QD
     Route: 048
     Dates: start: 20200313

REACTIONS (2)
  - Pyrexia [Unknown]
  - Malaise [Unknown]

NARRATIVE: CASE EVENT DATE: 20200317
